FAERS Safety Report 18083860 (Version 1)
Quarter: 2020Q3

REPORT INFORMATION
  Report Type: Spontaneous
  Country: CN (occurrence: CN)
  Receive Date: 20200728
  Receipt Date: 20200728
  Transmission Date: 20201103
  Serious: Yes (Other)
  Sender: FDA-Public Use
  Company Number: CN-ROCHE-2646183

PATIENT
  Age: 68 Year
  Sex: Female

DRUGS (8)
  1. CYCLOPHOSPHAMIDE. [Concomitant]
     Active Substance: CYCLOPHOSPHAMIDE
     Indication: MANTLE CELL LYMPHOMA STAGE IV
  2. PREDNISONE. [Concomitant]
     Active Substance: PREDNISONE
     Indication: MANTLE CELL LYMPHOMA STAGE IV
  3. MABTHERA [Suspect]
     Active Substance: RITUXIMAB
     Indication: MANTLE CELL LYMPHOMA STAGE IV
     Dosage: FOR 8 CYCLES
     Route: 065
     Dates: start: 20200615
  4. IBRUTINIB [Concomitant]
     Active Substance: IBRUTINIB
     Indication: MANTLE CELL LYMPHOMA STAGE IV
  5. BENDAMUSTINE [Concomitant]
     Active Substance: BENDAMUSTINE
     Dosage: DAY 1?2
  6. DOXORUBICIN [Concomitant]
     Active Substance: DOXORUBICIN
     Indication: MANTLE CELL LYMPHOMA STAGE IV
  7. VINCRISTINE [Concomitant]
     Active Substance: VINCRISTINE
     Indication: MANTLE CELL LYMPHOMA STAGE IV
  8. BENDAMUSTINE [Concomitant]
     Active Substance: BENDAMUSTINE
     Indication: MANTLE CELL LYMPHOMA STAGE IV
     Dosage: DAY 1?2

REACTIONS (23)
  - Cough [Unknown]
  - Blood creatinine increased [Unknown]
  - Gamma-glutamyltransferase increased [Unknown]
  - C-reactive protein increased [Unknown]
  - Globulins increased [Unknown]
  - Blood lactate dehydrogenase increased [Unknown]
  - Interstitial lung disease [Unknown]
  - Blood phosphorus increased [Unknown]
  - Off label use [Unknown]
  - Asthenia [Unknown]
  - Blood albumin decreased [Unknown]
  - Cystatin C increased [Unknown]
  - Blood glucose increased [Unknown]
  - Nausea [Unknown]
  - Blood immunoglobulin G decreased [Unknown]
  - Blood immunoglobulin M decreased [Unknown]
  - Intentional product use issue [Unknown]
  - Vomiting [Unknown]
  - Beta 2 microglobulin increased [Unknown]
  - Blood albumin increased [Unknown]
  - Pyrexia [Unknown]
  - Protein total decreased [Unknown]
  - Globulins decreased [Unknown]
